FAERS Safety Report 4782439-8 (Version None)
Quarter: 2005Q3

REPORT INFORMATION
  Report Type: 
  Country: None (occurrence: None)
  Receive Date: 20050929
  Receipt Date: 20041021
  Transmission Date: 20060218
  Serious: Yes (Life-Threatening, Hospitalization, Other)
  Sender: FDA-Public Use
  Company Number: US-GLAXOSMITHKLINE-A0530802A

PATIENT
  Age: 86 Year
  Sex: Female

DRUGS (1)
  1. COREG [Suspect]
     Indication: HYPERTENSION
     Route: 048

REACTIONS (3)
  - ATRIOVENTRICULAR BLOCK [None]
  - BRADYCARDIA [None]
  - SYNCOPE [None]
